FAERS Safety Report 5196823-4 (Version None)
Quarter: 2007Q1

REPORT INFORMATION
  Report Type: 
  Country: None (occurrence: None)
  Receive Date: 20070103
  Receipt Date: 20061227
  Transmission Date: 20070707
  Serious: Yes (Other)
  Sender: FDA-Public Use
  Company Number: 2006UW17495

PATIENT
  Sex: Female

DRUGS (2)
  1. ATENOLOL [Suspect]
     Indication: SUPRAVENTRICULAR TACHYCARDIA
     Route: 048
     Dates: start: 19990101
  2. ATENOLOL [Suspect]
     Indication: HYPERTENSION
     Route: 048
     Dates: start: 19990101

REACTIONS (5)
  - ARTERIAL BYPASS OPERATION [None]
  - ARTERIAL GRAFT [None]
  - ARTERIAL STENT INSERTION [None]
  - NEPHRECTOMY [None]
  - RENAL ARTERY STENT PLACEMENT [None]
